FAERS Safety Report 17399340 (Version 1)
Quarter: 2020Q1

REPORT INFORMATION
  Report Type: Spontaneous
  Country: GB (occurrence: GB)
  Receive Date: 20200211
  Receipt Date: 20200211
  Transmission Date: 20200409
  Serious: Yes (Other)
  Sender: FDA-Public Use
  Company Number: GB-ADVANZ PHARMA-202002000629

PATIENT

DRUGS (9)
  1. OMEPRAZOLE. [Concomitant]
     Active Substance: OMEPRAZOLE
     Dosage: 1 DOSAGE FORM, QD
     Dates: start: 20190820
  2. AMOXICILLIN. [Concomitant]
     Active Substance: AMOXICILLIN
     Dosage: 3 DOSAGE FORM, QD
  3. VITAMIN B [Concomitant]
     Active Substance: VITAMIN B
     Dosage: 1 DOSAGE FORM, QD
     Dates: start: 20170308
  4. PREDNISOLONE. [Suspect]
     Active Substance: PREDNISOLONE
     Dosage: 5 MG TABLET
     Dates: start: 20200127
  5. SPIRONOLACTONE. [Concomitant]
     Active Substance: SPIRONOLACTONE
     Dosage: 1 DOSAGE FORM, QD EVER MORNING
     Dates: start: 20170308
  6. FOSTAIR [Concomitant]
     Active Substance: BECLOMETHASONE\FORMOTEROL
     Dosage: 4 DOSAGE FORM, QD
     Route: 055
     Dates: start: 20190508
  7. PROPRANOLOL [Concomitant]
     Active Substance: PROPRANOLOL HYDROCHLORIDE
     Dosage: 4 DOSAGE FORM, QD
     Dates: start: 20170308
  8. THIAMINE. [Concomitant]
     Active Substance: THIAMINE
     Dosage: 1 DOSAGE FORM, QD
     Dates: start: 20170308
  9. VENTOLIN [Concomitant]
     Active Substance: ALBUTEROL SULFATE
     Dosage: UNK, PRN INHALE ONE TO TWO DOSES
     Route: 055
     Dates: start: 20190508

REACTIONS (1)
  - Syncope [Recovered/Resolved]
